FAERS Safety Report 6589563-8 (Version None)
Quarter: 2010Q1

REPORT INFORMATION
  Report Type: 
  Country: None (occurrence: None)
  Receive Date: 20100212
  Receipt Date: 20100119
  Transmission Date: 20100710
  Serious: Yes (Other)
  Sender: FDA-Public Use
  Company Number: DSA_42239_2009

PATIENT
  Age: 34 Year
  Sex: Female

DRUGS (5)
  1. WELLBUTRIN SR [Suspect]
     Indication: DRUG USE FOR UNKNOWN INDICATION
     Dosage: (150 MG, ONE TABLET IN THE MORNING)
  2. LAMOTRIGINE [Concomitant]
  3. FERROUS FUMARATE [Concomitant]
  4. PANTOPRAZOLE [Concomitant]
  5. TRAZODONE HYDROCHLORIDE [Concomitant]

REACTIONS (2)
  - DEAFNESS UNILATERAL [None]
  - SUDDEN HEARING LOSS [None]
